FAERS Safety Report 12681333 (Version 2)
Quarter: 2016Q3

REPORT INFORMATION
  Report Type: Spontaneous
  Country: US (occurrence: US)
  Receive Date: 20160824
  Receipt Date: 20160829
  Transmission Date: 20161109
  Serious: Yes (Hospitalization, Other)
  Sender: FDA-Public Use
  Company Number: US-PFIZER INC-2016400011

PATIENT
  Age: 52 Year
  Sex: Female

DRUGS (1)
  1. GABAPENTIN. [Suspect]
     Active Substance: GABAPENTIN
     Indication: NEUROPATHY PERIPHERAL
     Dosage: 300 MG, 3X/DAY

REACTIONS (7)
  - Dizziness [Unknown]
  - Balance disorder [Recovering/Resolving]
  - Fall [Unknown]
  - Product use issue [Unknown]
  - Gait disturbance [Unknown]
  - Inner ear disorder [Unknown]
  - Central nervous system lesion [Unknown]
